FAERS Safety Report 23618657 (Version 1)
Quarter: 2024Q1

REPORT INFORMATION
  Report Type: Spontaneous
  Country: US (occurrence: None)
  Receive Date: 20240311
  Receipt Date: 20240311
  Transmission Date: 20240409
  Serious: Yes (Other)
  Sender: FDA-Public Use
  Company Number: None

PATIENT
  Age: 77 Year
  Sex: Female
  Weight: 49.95 kg

DRUGS (9)
  1. VOLTAREN [Suspect]
     Active Substance: DICLOFENAC SODIUM
     Indication: Arthritis
     Dosage: OTHER QUANTITY : .14 OUNCE(S);?FREQUENCY : EVERY 8 HOURS;?
     Route: 061
     Dates: start: 20240307, end: 20240310
  2. ELIQUIS [Concomitant]
     Active Substance: APIXABAN
  3. VALTREX [Concomitant]
     Active Substance: VALACYCLOVIR HYDROCHLORIDE
  4. ROSUVASTATIN [Concomitant]
     Active Substance: ROSUVASTATIN
  5. Vitamins B [Concomitant]
  6. Vitamins D [Concomitant]
  7. DIETARY SUPPLEMENT [Concomitant]
     Active Substance: DIETARY SUPPLEMENT
  8. BIOTIN [Concomitant]
  9. COENZYME Q10 [Concomitant]
     Active Substance: DIETARY SUPPLEMENT\UBIDECARENONE

REACTIONS (6)
  - Intentional underdose [None]
  - Gingival swelling [None]
  - Rash [None]
  - Skin burning sensation [None]
  - Eye swelling [None]
  - Eyelid ptosis [None]

NARRATIVE: CASE EVENT DATE: 20240309
